FAERS Safety Report 10863679 (Version 1)
Quarter: 2015Q1

REPORT INFORMATION
  Report Type: Spontaneous
  Country: FR (occurrence: FR)
  Receive Date: 20150224
  Receipt Date: 20150224
  Transmission Date: 20150721
  Serious: Yes (Hospitalization)
  Sender: FDA-Public Use
  Company Number: FR-PFIZER INC-2015062798

PATIENT
  Age: 62 Year
  Sex: Male

DRUGS (3)
  1. IOMERON [Concomitant]
     Active Substance: IOMEPROL
     Dosage: UNK
     Dates: start: 20141226
  2. ROVAMYCINE [Suspect]
     Active Substance: SPIRAMYCIN
     Dosage: UNK
     Route: 042
     Dates: start: 20141223, end: 20141229
  3. TAZOCILLINE [Suspect]
     Active Substance: PIPERACILLIN SODIUM\TAZOBACTAM SODIUM
     Dosage: UNK
     Route: 042
     Dates: start: 20141219, end: 20141229

REACTIONS (3)
  - Basophil count increased [Recovered/Resolved]
  - Hepatocellular injury [Recovering/Resolving]
  - Rash morbilliform [Recovered/Resolved]

NARRATIVE: CASE EVENT DATE: 20141229
